FAERS Safety Report 6707136-0 (Version None)
Quarter: 2010Q2

REPORT INFORMATION
  Report Type: 
  Country: None (occurrence: None)
  Receive Date: 20100503
  Receipt Date: 20100421
  Transmission Date: 20101027
  Serious: Yes (Other)
  Sender: FDA-Public Use
  Company Number: US-PFIZER INC-2010003689

PATIENT
  Sex: Female
  Weight: 49.9 kg

DRUGS (2)
  1. XALATAN [Suspect]
     Indication: INTRAOCULAR PRESSURE TEST
     Dosage: 1 DROP DAILY
     Dates: start: 20091001, end: 20100101
  2. PLAVIX [Concomitant]
     Indication: CARDIAC DISORDER

REACTIONS (1)
  - INTRAOCULAR PRESSURE INCREASED [None]
